FAERS Safety Report 10698404 (Version 1)
Quarter: 2015Q1

REPORT INFORMATION
  Report Type: Spontaneous
  Country: JP (occurrence: JP)
  Receive Date: 20150108
  Receipt Date: 20150108
  Transmission Date: 20150721
  Serious: Yes (Death, Other)
  Sender: FDA-Public Use
  Company Number: JP-CELGENE-JPN-2015010924

PATIENT
  Age: 55 Year
  Sex: Male

DRUGS (6)
  1. GEMTUZUMAB OZOGAMICIN [Suspect]
     Active Substance: GEMTUZUMAB OZOGAMICIN
     Route: 065
  2. ANTI-THYMOCYTE GLOBULIN (RABBIT) NOS [Concomitant]
     Active Substance: LAPINE T-LYMPHOCYTE IMMUNE GLOBULIN
     Route: 065
  3. CYCLOPHOSPHAMIDE. [Concomitant]
     Active Substance: CYCLOPHOSPHAMIDE
     Route: 065
  4. VIDAZA [Suspect]
     Active Substance: AZACITIDINE
     Dosage: 30 MILLIGRAM/SQ. METER
     Route: 041
  5. FLUDARABINE [Concomitant]
     Active Substance: FLUDARABINE PHOSPHATE
     Dosage: 3 MILLIGRAM/SQ. METER
     Route: 065
  6. CYTARABINE ARABINOSIDE [Concomitant]
     Active Substance: CYTARABINE
     Route: 065

REACTIONS (6)
  - Anaemia [Unknown]
  - Pneumocystis jirovecii pneumonia [Fatal]
  - Cytomegalovirus gastritis [Unknown]
  - Febrile neutropenia [Unknown]
  - Thrombocytopenia [Unknown]
  - Neutropenia [Unknown]
